FAERS Safety Report 26156348 (Version 2)
Quarter: 2025Q4

REPORT INFORMATION
  Report Type: Spontaneous
  Country: US (occurrence: US)
  Receive Date: 20251215
  Receipt Date: 20251223
  Transmission Date: 20260117
  Serious: Yes (Life-Threatening, Hospitalization, Other)
  Sender: CIPLA
  Company Number: US-CIPLA LTD.-2025US15608

PATIENT

DRUGS (2)
  1. AMLODIPINE [Suspect]
     Active Substance: AMLODIPINE BESYLATE
     Dosage: UNK (10 MG OF 90 DAYS WORTH MEDICINE) (1 TOTAL)
     Route: 065
  2. CHLORTHALIDONE [Suspect]
     Active Substance: CHLORTHALIDONE
     Dosage: UNK, (25 MG OF 90 DAYS WORTH MEDICINE) (1 TOTAL)
     Route: 065

REACTIONS (8)
  - Hypoxia [Recovered/Resolved]
  - Intentional overdose [Unknown]
  - Atelectasis [Recovered/Resolved]
  - Pulmonary artery dilatation [Recovered/Resolved]
  - Ventilation perfusion mismatch [Recovered/Resolved]
  - Vasoconstriction [Recovered/Resolved]
  - Vasodilatation [Unknown]
  - Blood pressure decreased [Unknown]
